FAERS Safety Report 9137347 (Version 1)
Quarter: 2013Q1

REPORT INFORMATION
  Report Type: Spontaneous
  Country: US (occurrence: US)
  Receive Date: 20130219
  Receipt Date: 20130219
  Transmission Date: 20140127
  Serious: No
  Sender: FDA-Public Use
  Company Number: US-BRISTOL-MYERS SQUIBB COMPANY-16505521

PATIENT
  Age: 59 Year
  Sex: Female
  Weight: 77.1 kg

DRUGS (4)
  1. ORENCIA [Suspect]
     Dosage: SWITCHED TO SC 16MAR2012
     Route: 042
     Dates: start: 20120315
  2. METHOTREXATE [Concomitant]
  3. FOLIC ACID [Concomitant]
  4. MELOXICAM [Concomitant]

REACTIONS (1)
  - Injection site reaction [Not Recovered/Not Resolved]
